FAERS Safety Report 6791260-0 (Version None)
Quarter: 2010Q2

REPORT INFORMATION
  Report Type: 
  Country: None (occurrence: None)
  Receive Date: 20100624
  Receipt Date: 20100614
  Transmission Date: 20101027
  Serious: Yes (Death)
  Sender: FDA-Public Use
  Company Number: US-WATSON-2010-08198

PATIENT
  Age: 60 Year
  Sex: Female

DRUGS (2)
  1. CARBOPLATIN [Suspect]
     Indication: UTERINE CANCER
     Dosage: UNK
  2. PACLITAXEL [Suspect]
     Indication: UTERINE CANCER
     Dosage: UNK

REACTIONS (1)
  - TUMOUR LYSIS SYNDROME [None]
